FAERS Safety Report 6290347-9 (Version None)
Quarter: 2009Q3

REPORT INFORMATION
  Report Type: 
  Country: None (occurrence: None)
  Receive Date: 20090730
  Receipt Date: 20090306
  Transmission Date: 20100115
  Serious: No
  Sender: FDA-Public Use
  Company Number: US-BRISTOL-MYERS SQUIBB COMPANY-14534341

PATIENT
  Age: 75 Year
  Sex: Female

DRUGS (8)
  1. COUMADIN [Suspect]
     Indication: ATRIAL FIBRILLATION
     Dates: end: 20090115
  2. RESTASIS [Suspect]
     Indication: BLEPHARITIS
     Dates: start: 20081101
  3. PREDNISOLONE [Concomitant]
     Indication: BLEPHARITIS
     Dosage: 1 DF= DROPS
  4. COMBIVENT [Concomitant]
     Indication: LUNG DISORDER
  5. FLOVENT [Concomitant]
     Indication: LUNG DISORDER
  6. ATENOLOL [Concomitant]
     Indication: BLOOD PRESSURE INCREASED
  7. DIOVAN [Concomitant]
     Indication: BLOOD PRESSURE INCREASED
  8. FLECAINIDE ACETATE [Concomitant]
     Indication: ATRIAL FIBRILLATION

REACTIONS (2)
  - CONJUNCTIVAL HAEMORRHAGE [None]
  - EYE PAIN [None]
